FAERS Safety Report 16207819 (Version 2)
Quarter: 2019Q2

REPORT INFORMATION
  Report Type: Spontaneous
  Country: US (occurrence: US)
  Receive Date: 20190417
  Receipt Date: 20190423
  Transmission Date: 20190711
  Serious: Yes (Death, Hospitalization, Other)
  Sender: FDA-Public Use
  Company Number: US-ASTRAZENECA-2019SE41928

PATIENT
  Age: 73 Year
  Sex: Female
  Weight: 52.8 kg

DRUGS (21)
  1. PYRIDOXINE [Concomitant]
     Active Substance: PYRIDOXINE
     Route: 048
  2. LEVAQUIN [Concomitant]
     Active Substance: LEVOFLOXACIN
     Dosage: 750.0MG ONCE/SINGLE ADMINISTRATION
     Route: 042
  3. ASPIRIN. [Concomitant]
     Active Substance: ASPIRIN
     Route: 048
  4. LIPITOR [Concomitant]
     Active Substance: ATORVASTATIN CALCIUM
     Route: 048
  5. FOSAMAX [Concomitant]
     Active Substance: ALENDRONATE SODIUM
  6. FEMARA [Concomitant]
     Active Substance: LETROZOLE
     Indication: BREAST CANCER METASTATIC
     Dates: start: 2015
  7. FASLODEX [Suspect]
     Active Substance: FULVESTRANT
     Indication: BREAST CANCER METASTATIC
     Route: 030
     Dates: start: 20180619, end: 20181004
  8. IBRANCE [Suspect]
     Active Substance: PALBOCICLIB
     Indication: BREAST CANCER METASTATIC
     Route: 048
     Dates: start: 20180619
  9. NAMENDA [Concomitant]
     Active Substance: MEMANTINE HYDROCHLORIDE
  10. KLOR-CON [Concomitant]
     Active Substance: POTASSIUM CHLORIDE
     Dosage: 20 MEQ CR TABLET
  11. ZOSYN [Concomitant]
     Active Substance: PIPERACILLIN SODIUM\TAZOBACTAM SODIUM
     Dosage: 3,375 MG IN SODIUM CHLORIDE 0.9% 100 ML IVPB
     Route: 042
     Dates: start: 20181225
  12. VANCOCIN [Concomitant]
     Active Substance: VANCOMYCIN HYDROCHLORIDE
     Dosage: 750 MG IN SODIUM CHLORIDE 0.9% 250 ML IVPB ONCE/SINGLE ADMINISTRATION
     Route: 042
  13. ZYLOPRIM [Concomitant]
     Active Substance: ALLOPURINOL
     Route: 048
  14. DECADRON [Concomitant]
     Active Substance: DEXAMETHASONE
  15. CALCIUM GLUCONATE. [Concomitant]
     Active Substance: CALCIUM GLUCONATE
     Dosage: 1.0G ONCE/SINGLE ADMINISTRATION
     Route: 042
  16. ZYLOPRIM [Concomitant]
     Active Substance: ALLOPURINOL
     Route: 048
  17. CALTRATE WITH VITAMIN D [Concomitant]
     Active Substance: CALCIUM CARBONATE\CHOLECALCIFEROL
     Dosage: 600 DAILY
     Route: 048
  18. OMEGA-6 FATTY ACIDS [Concomitant]
     Active Substance: OMEGA-6 FATTY ACIDS
     Dosage: 340-1,000 MG 1 CAPSULE BY DAILY
     Route: 048
  19. TOPROL XL [Suspect]
     Active Substance: METOPROLOL SUCCINATE
     Route: 048
  20. SODIUM CHLORIDE. [Concomitant]
     Active Substance: SODIUM CHLORIDE
     Dosage: 30.0MG/KG ONCE/SINGLE ADMINISTRATION
     Dates: start: 20181225
  21. VITAMIN E [Concomitant]
     Active Substance: .ALPHA.-TOCOPHEROL
     Route: 048

REACTIONS (15)
  - Pneumonia bacterial [Unknown]
  - Asthenia [Unknown]
  - Malnutrition [Unknown]
  - Metabolic acidosis [Unknown]
  - Rhabdomyolysis [Unknown]
  - Metabolic encephalopathy [Unknown]
  - Hyperkalaemia [Unknown]
  - Ischaemic cerebral infarction [Unknown]
  - Malignant neoplasm progression [Fatal]
  - Dehydration [Unknown]
  - Septic shock [Unknown]
  - Acute kidney injury [Unknown]
  - Hypophagia [Unknown]
  - Respiratory failure [Unknown]
  - Leukopenia [Unknown]
